FAERS Safety Report 25453211 (Version 1)
Quarter: 2025Q2

REPORT INFORMATION
  Report Type: Spontaneous
  Country: JP (occurrence: JP)
  Receive Date: 20250618
  Receipt Date: 20250618
  Transmission Date: 20250717
  Serious: Yes (Hospitalization, Other)
  Sender: MERCK SHARP & DOHME LLC
  Company Number: JP-009507513-2296910

PATIENT
  Age: 8 Decade
  Sex: Female

DRUGS (1)
  1. KEYTRUDA [Suspect]
     Active Substance: PEMBROLIZUMAB
     Indication: Cholangiocarcinoma

REACTIONS (5)
  - Device occlusion [Unknown]
  - Therapy partial responder [Unknown]
  - Eosinophilia [Unknown]
  - Hepatitis acute [Unknown]
  - Lymphocytic infiltration [Unknown]
